FAERS Safety Report 4674670-7 (Version None)
Quarter: 2005Q2

REPORT INFORMATION
  Report Type: 
  Country: None (occurrence: None)
  Receive Date: 20050526
  Receipt Date: 20050429
  Transmission Date: 20051028
  Serious: Yes (Hospitalization)
  Sender: FDA-Public Use
  Company Number: FR-GLAXOSMITHKLINE-B0379678A

PATIENT
  Age: 63 Year
  Sex: Female

DRUGS (6)
  1. ZELITREX [Suspect]
     Indication: ILL-DEFINED DISORDER
     Dosage: 500MG TWICE PER DAY
     Route: 048
     Dates: start: 20050121, end: 20050209
  2. ORACILLINE [Suspect]
     Dosage: 1IU6 TWICE PER DAY
     Route: 048
     Dates: start: 20050121, end: 20050209
  3. LEUSTATINE [Suspect]
     Dosage: 7MG PER DAY
     Route: 042
     Dates: start: 20050115, end: 20050121
  4. LEVOTHYROX [Suspect]
     Indication: THYROIDECTOMY PARTIAL
     Dosage: 75MCG PER DAY
     Route: 048
  5. BACTRIM [Suspect]
     Dosage: 1TAB THREE TIMES PER DAY
     Route: 048
     Dates: start: 20050121, end: 20050218
  6. GRANOCYTE [Suspect]
     Dosage: 1UNIT PER DAY
     Route: 058
     Dates: start: 20050124, end: 20050202

REACTIONS (5)
  - DIARRHOEA [None]
  - EOSINOPHILIA [None]
  - FACE OEDEMA [None]
  - OEDEMA PERIPHERAL [None]
  - SCLERODERMA [None]
